FAERS Safety Report 20492929 (Version 2)
Quarter: 2022Q1

REPORT INFORMATION
  Report Type: Spontaneous
  Country: US (occurrence: US)
  Receive Date: 20220219
  Receipt Date: 20220221
  Transmission Date: 20220423
  Serious: Yes (Hospitalization)
  Sender: FDA-Public Use
  Company Number: US-TEVA-2022-US-2009276

PATIENT
  Age: 40 Year
  Sex: Female

DRUGS (1)
  1. CLOZAPINE [Suspect]
     Active Substance: CLOZAPINE
     Indication: Schizoaffective disorder
     Dosage: 400 MILLIGRAM DAILY;
     Route: 065

REACTIONS (4)
  - Cardiac arrest [Recovered/Resolved]
  - Brain hypoxia [Unknown]
  - Shock [Not Recovered/Not Resolved]
  - Product prescribing error [Unknown]
